FAERS Safety Report 11350051 (Version 1)
Quarter: 2015Q3

REPORT INFORMATION
  Report Type: Spontaneous
  Country: US (occurrence: None)
  Receive Date: 20150806
  Receipt Date: 20150806
  Transmission Date: 20151125
  Serious: Yes (Other)
  Sender: FDA-Public Use
  Company Number: None

PATIENT
  Age: 72 Year
  Sex: Female
  Weight: 49.9 kg

DRUGS (3)
  1. MULTI-VITAMINS WITH CALCIUM [Concomitant]
  2. POTASSIUM SUPPLEMENT [Concomitant]
  3. TESSALON [Suspect]
     Active Substance: BENZONATATE
     Indication: COUGH
     Dosage: 20 THREE TIMES DAILY TAKEN BY MOUTH
     Route: 048
     Dates: start: 20150803, end: 20150805

REACTIONS (2)
  - Suicidal ideation [None]
  - Depression [None]

NARRATIVE: CASE EVENT DATE: 20150803
